FAERS Safety Report 7940830-2 (Version None)
Quarter: 2011Q4

REPORT INFORMATION
  Report Type: 
  Country: None (occurrence: None)
  Receive Date: 20111128
  Receipt Date: 20111123
  Transmission Date: 20120403
  Serious: Yes (Death, Congenital Anomaly, Other)
  Sender: FDA-Public Use
  Company Number: US-PFIZER INC-2011159874

PATIENT
  Sex: Male
  Weight: 2.9 kg

DRUGS (8)
  1. VISTARIL [Concomitant]
     Dosage: UNK
     Route: 064
  2. AMBIEN [Concomitant]
     Indication: DEPRESSION
     Dosage: 10 MG, UNK
     Route: 064
     Dates: start: 20091015
  3. ZYRTEC [Concomitant]
     Dosage: UNK
     Route: 064
     Dates: start: 20091117
  4. TAMIFLU [Concomitant]
     Indication: INFLUENZA
     Dosage: 75 MG, 2X/DAY
     Route: 064
     Dates: start: 20091117
  5. ZOLOFT [Suspect]
     Indication: DEPRESSION
     Dosage: 150 MG, 1X/DAY
     Route: 064
  6. MULTI-VITAMINS [Concomitant]
     Dosage: UNK
     Route: 064
  7. PREVACID [Concomitant]
     Indication: GASTROOESOPHAGEAL REFLUX DISEASE
     Dosage: 30 MG, 1X/DAY
     Route: 064
     Dates: start: 20100128
  8. ZITHROMAX [Concomitant]
     Indication: INFLUENZA
     Dosage: UNK
     Route: 064
     Dates: start: 20091117

REACTIONS (2)
  - SUDDEN INFANT DEATH SYNDROME [None]
  - FOETAL EXPOSURE DURING PREGNANCY [None]
